FAERS Safety Report 23553401 (Version 2)
Quarter: 2024Q4

REPORT INFORMATION
  Report Type: Spontaneous
  Country: US (occurrence: US)
  Receive Date: 20240222
  Receipt Date: 20241021
  Transmission Date: 20250115
  Serious: No
  Sender: SANDOZ
  Company Number: US-SANDOZ-SDZ2024US017869

PATIENT
  Sex: Male

DRUGS (1)
  1. RITALIN [Suspect]
     Active Substance: METHYLPHENIDATE HYDROCHLORIDE
     Indication: Product used for unknown indication
     Dosage: 1X DAILY
     Route: 065

REACTIONS (5)
  - Histrionic personality disorder [Unknown]
  - Loss of personal independence in daily activities [Unknown]
  - Agitation [Unknown]
  - Abnormal behaviour [Unknown]
  - Drug ineffective [Unknown]
